FAERS Safety Report 21034864 (Version 1)
Quarter: 2022Q3

REPORT INFORMATION
  Report Type: Spontaneous
  Country: BR (occurrence: BR)
  Receive Date: 20220701
  Receipt Date: 20220701
  Transmission Date: 20221027
  Serious: Yes (Hospitalization, Other)
  Sender: FDA-Public Use
  Company Number: BR-PAIPHARMA-2022-BR-000051

PATIENT
  Age: 24 Year
  Sex: Female

DRUGS (3)
  1. VALPROIC ACID [Suspect]
     Active Substance: VALPROIC ACID
     Indication: Rasmussen encephalitis
  2. CARBAMAZEPINE [Concomitant]
     Active Substance: CARBAMAZEPINE
  3. PHENOBARBITAL [Concomitant]
     Active Substance: PHENOBARBITAL

REACTIONS (2)
  - Choreoathetosis [Recovered/Resolved]
  - Toxicity to various agents [Recovered/Resolved]
